FAERS Safety Report 17932967 (Version 2)
Quarter: 2021Q2

REPORT INFORMATION
  Report Type: Spontaneous
  Country: FR (occurrence: FR)
  Receive Date: 20200624
  Receipt Date: 20210531
  Transmission Date: 20210717
  Serious: Yes (Hospitalization, Other)
  Sender: FDA-Public Use
  Company Number: FR-CELLTRION INC.-2020FR023516

PATIENT

DRUGS (17)
  1. RITUXIMAB (UNKNOWN) [Suspect]
     Active Substance: RITUXIMAB
     Indication: DRUG THERAPY
     Dosage: UNK
     Route: 065
  2. CYTARABINE. [Suspect]
     Active Substance: CYTARABINE
     Dosage: 3G/M2 FOR 3 DAYS DURING CONSOLIDATION THERAPY (EVERY 12 HOURS)
     Route: 065
  3. HYDROCORTISONE. [Suspect]
     Active Substance: HYDROCORTISONE
     Indication: ACUTE MYELOID LEUKAEMIA
     Dosage: PHARMACEUTICAL DOSAGE FORM: 120
     Route: 037
  4. METHOTREXATE. [Suspect]
     Active Substance: METHOTREXATE
     Indication: ACUTE MYELOID LEUKAEMIA
     Dosage: DURING INDUCTION THERAPY; PHARMACEUTICAL DOSAGE FORM: 120
     Route: 037
  5. CYTARABINE. [Suspect]
     Active Substance: CYTARABINE
     Indication: ACUTE MYELOID LEUKAEMIA
     Dosage: 2000 MG/M2 FROM DAYS 1 TO 5
     Route: 065
  6. GEMTUZUMAB OZOGAMICIN [Suspect]
     Active Substance: GEMTUZUMAB OZOGAMICIN
     Dosage: (2 X 3 MG/M2) DURING SUPPLEMENTARY COURSE
     Route: 065
  7. FLUDARABINE [Suspect]
     Active Substance: FLUDARABINE PHOSPHATE
     Indication: DRUG THERAPY
     Dosage: CONDITIONING THERAPY AFTER TRANSPLANT
     Route: 065
  8. GEMTUZUMAB OZOGAMICIN [Suspect]
     Active Substance: GEMTUZUMAB OZOGAMICIN
     Indication: ACUTE MYELOID LEUKAEMIA REFRACTORY
     Dosage: 3 MG/M2, ROUTE: INFUSION ON DAYS 1, 4 AND 7
     Route: 050
  9. FLUDARABINE [Suspect]
     Active Substance: FLUDARABINE PHOSPHATE
     Indication: ACUTE MYELOID LEUKAEMIA REFRACTORY
     Dosage: 30 MG/M2, DAYS 1 TO 5
     Route: 065
  10. CYCLOPHOSPHAMIDE. [Suspect]
     Active Substance: CYCLOPHOSPHAMIDE
     Indication: DRUG THERAPY
     Route: 065
  11. CYTARABINE. [Suspect]
     Active Substance: CYTARABINE
     Dosage: 200 MG/M2 DAILY; CONTINUOUS INJECTION OR 7 DAYS DURING INDUCTION THERAPY
     Route: 065
  12. DEXAMETHASONE. [Suspect]
     Active Substance: DEXAMETHASONE
     Indication: ACUTE MYELOID LEUKAEMIA
     Dosage: DURING INDUCTION THERAPY
     Route: 037
  13. DEFIBROTIDE [Suspect]
     Active Substance: DEFIBROTIDE (BOVINE)
     Indication: PROPHYLAXIS
     Dosage: UNK
     Route: 065
  14. MITOXANTRONE [Suspect]
     Active Substance: MITOXANTRONE HYDROCHLORIDE
     Indication: ACUTE MYELOID LEUKAEMIA
     Dosage: 12 MG/M2, FOR 5 DAYS DURING INDUCTION THERAPY
     Route: 065
  15. URSODESOXYCHOLIC ACID [Concomitant]
     Active Substance: URSODIOL
     Indication: PROPHYLAXIS
     Route: 065
  16. AMSACRINE [Concomitant]
     Active Substance: AMSACRINE
     Indication: ACUTE MYELOID LEUKAEMIA
     Dosage: 100 MG/M2, DAILY
     Route: 065
  17. CYTARABINE. [Suspect]
     Active Substance: CYTARABINE
     Dosage: DURING INDUCTION THERAPY
     Route: 037

REACTIONS (9)
  - Cerebral haemorrhage [Unknown]
  - Venoocclusive liver disease [Unknown]
  - Febrile neutropenia [Unknown]
  - Hypersensitivity [Recovered/Resolved]
  - Drug resistance [Unknown]
  - Sepsis [Unknown]
  - Granulicatella infection [Unknown]
  - Off label use [Unknown]
  - Myalgia [Unknown]
